FAERS Safety Report 6687378-3 (Version None)
Quarter: 2010Q2

REPORT INFORMATION
  Report Type: 
  Country: None (occurrence: None)
  Receive Date: 20100416
  Receipt Date: 20100416
  Transmission Date: 20101027
  Serious: Yes (Hospitalization)
  Sender: FDA-Public Use
  Company Number: None

PATIENT
  Sex: Female
  Weight: 42.6381 kg

DRUGS (1)
  1. ALIMTA [Suspect]
     Indication: PANCREATIC CARCINOMA
     Dosage: 500MG IV X 1
     Route: 042
     Dates: start: 20100330

REACTIONS (4)
  - ASTHENIA [None]
  - DECREASED APPETITE [None]
  - FAILURE TO THRIVE [None]
  - MALAISE [None]
